FAERS Safety Report 9246872 (Version 2)
Quarter: 2013Q4

REPORT INFORMATION
  Report Type: Spontaneous
  Country: US (occurrence: US)
  Receive Date: 20130422
  Receipt Date: 20131125
  Transmission Date: 20140711
  Serious: Yes (Other)
  Sender: FDA-Public Use
  Company Number: US-GLAXOSMITHKLINE-A1020230A

PATIENT
  Age: 62 Year
  Sex: Male

DRUGS (4)
  1. JALYN [Suspect]
     Indication: PROSTATOMEGALY
     Dosage: 1CAP PER DAY
     Route: 048
     Dates: start: 2012, end: 201304
  2. BLOOD PRESSURE MEDICATION [Concomitant]
  3. TIKOSYN [Concomitant]
  4. UNSPECIFIED MEDICATIONS [Concomitant]

REACTIONS (3)
  - Lip and/or oral cavity cancer [Unknown]
  - Dysphagia [Unknown]
  - Prostatic disorder [Unknown]
